FAERS Safety Report 7044501-9 (Version None)
Quarter: 2010Q4

REPORT INFORMATION
  Report Type: 
  Country: None (occurrence: None)
  Receive Date: 20101013
  Receipt Date: 20101013
  Transmission Date: 20110411
  Serious: Yes (Other)
  Sender: FDA-Public Use
  Company Number: None

PATIENT
  Age: 79 Year
  Sex: Female
  Weight: 85.7298 kg

DRUGS (1)
  1. IODINE PLUS-2 -SEE ABOVE SECTION- NATURAL LIVING INC [Suspect]
     Indication: HYPOTHYROIDISM
     Dosage: SEVERAL MONTHS TO PRESENT

REACTIONS (1)
  - SELF-MEDICATION [None]
